FAERS Safety Report 8933291 (Version 1)
Quarter: 2012Q4

REPORT INFORMATION
  Report Type: 
  Country: AR (occurrence: AR)
  Receive Date: 20121129
  Receipt Date: 20121129
  Transmission Date: 20130627
  Serious: Yes (Hospitalization)
  Sender: FDA-Public Use
  Company Number: PHHY2012AR108985

PATIENT
  Sex: Male

DRUGS (1)
  1. DIOVAN [Suspect]
     Indication: HYPERTENSION
     Dosage: 160 mg, daily
     Route: 048
     Dates: start: 201209, end: 201210

REACTIONS (2)
  - Arterial occlusive disease [Recovering/Resolving]
  - Angina unstable [Recovering/Resolving]
